FAERS Safety Report 13427866 (Version 3)
Quarter: 2017Q2

REPORT INFORMATION
  Report Type: Report from Study
  Country: US (occurrence: US)
  Receive Date: 20170411
  Receipt Date: 20170606
  Transmission Date: 20170830
  Serious: Yes (Other)
  Sender: FDA-Public Use
  Company Number: US-PFIZER INC-2016582726

PATIENT
  Age: 51 Year
  Sex: Female

DRUGS (1)
  1. IBRANCE [Suspect]
     Active Substance: PALBOCICLIB
     Indication: BREAST CANCER
     Dosage: 125 MG DAILY, CYCLIC (DAILY, 3 WEEKS ON/1 WEEK OFF)
     Route: 048
     Dates: start: 20161210

REACTIONS (13)
  - Dysgeusia [Unknown]
  - Abdominal pain upper [Unknown]
  - Fatigue [Recovering/Resolving]
  - Rash erythematous [Unknown]
  - Headache [Not Recovered/Not Resolved]
  - Pain [Recovering/Resolving]
  - Nausea [Recovering/Resolving]
  - Vomiting [Unknown]
  - Rash pruritic [Unknown]
  - Hot flush [Unknown]
  - Bone marrow failure [Not Recovered/Not Resolved]
  - Rash papular [Unknown]
  - Dizziness [Unknown]

NARRATIVE: CASE EVENT DATE: 201702
